FAERS Safety Report 8914484 (Version 1)
Quarter: 2012Q4

REPORT INFORMATION
  Report Type: 
  Country: CA (occurrence: CA)
  Receive Date: 20121119
  Receipt Date: 20121119
  Transmission Date: 20130627
  Serious: Yes (Hospitalization)
  Sender: FDA-Public Use
  Company Number: PHBS2001CA03020

PATIENT
  Age: 71 Year
  Sex: Male

DRUGS (1)
  1. EXELON [Suspect]
     Dosage: 1.5 mg, BID
     Route: 048
     Dates: start: 20010118

REACTIONS (4)
  - Emphysema [Not Recovered/Not Resolved]
  - Anxiety [Recovered/Resolved]
  - Abdominal pain [Recovered/Resolved]
  - Tremor [Recovered/Resolved]
